FAERS Safety Report 8921457 (Version 2)
Quarter: 2012Q4

REPORT INFORMATION
  Report Type: 
  Country: IT (occurrence: FR)
  Receive Date: 20121121
  Receipt Date: 20121206
  Transmission Date: 20130627
  Serious: Yes (Hospitalization)
  Sender: FDA-Public Use
  Company Number: FR-FRI-1000040525

PATIENT
  Age: 64 Year
  Sex: Female

DRUGS (6)
  1. NEBIVOLOL [Suspect]
     Indication: HYPERTENSION
     Dosage: 5 mg
     Route: 048
     Dates: start: 20111022, end: 20111201
  2. PREVISCAN [Suspect]
     Indication: VENOUS THROMBOSIS
     Route: 048
     Dates: start: 20111028, end: 20111130
  3. CRESTOR [Suspect]
     Indication: HYPERTENSION
     Route: 048
     Dates: start: 20111022, end: 20111201
  4. ALPRAZOLAM [Concomitant]
     Dates: end: 20111201
  5. HYTACAND [Concomitant]
     Indication: HYPERTENSION
     Dosage: 8 mg/12.5 mg
     Route: 048
     Dates: end: 20111201
  6. PIASCLEDINE [Concomitant]
     Dates: end: 20111201

REACTIONS (2)
  - Drug reaction with eosinophilia and systemic symptoms [Recovered/Resolved]
  - Haematuria [Recovered/Resolved]
